FAERS Safety Report 4416567-3 (Version None)
Quarter: 2004Q2

REPORT INFORMATION
  Report Type: 
  Country: None (occurrence: None)
  Receive Date: 20040630
  Receipt Date: 20040330
  Transmission Date: 20050107
  Serious: Yes (Other)
  Sender: FDA-Public Use
  Company Number: ENTC2004-0065

PATIENT
  Age: 65 Year
  Sex: Female

DRUGS (2)
  1. STALEVO 100 [Suspect]
     Indication: PARKINSON'S DISEASE
     Dosage: 100 MG/25 MG/200 MG OD, ORAL
     Route: 048
  2. SINEMET [Concomitant]

REACTIONS (3)
  - BRADYKINESIA [None]
  - DIZZINESS [None]
  - FEELING ABNORMAL [None]
